FAERS Safety Report 5865872-2 (Version None)
Quarter: 2008Q3

REPORT INFORMATION
  Report Type: 
  Country: None (occurrence: None)
  Receive Date: 20080829
  Receipt Date: 20080818
  Transmission Date: 20090109
  Serious: Yes (Hospitalization, Other)
  Sender: FDA-Public Use
  Company Number: BE-ELI_LILLY_AND_COMPANY-BE200806005757

PATIENT
  Age: 62 Year
  Sex: Female
  Weight: 112 kg

DRUGS (13)
  1. CYMBALTA [Suspect]
     Indication: DEPRESSION
     Dosage: 60 MG, DAILY (1/D)
     Route: 048
     Dates: start: 20080328, end: 20080420
  2. CYMBALTA [Suspect]
     Dosage: 60 MG, DAILY (1/D)
     Route: 048
     Dates: start: 20080101, end: 20080101
  3. CYMBALTA [Suspect]
     Dosage: UNK, UNKNOWN
     Route: 048
     Dates: start: 20080101, end: 20080101
  4. ALPRAZOLAM [Concomitant]
     Dosage: 1 MG, 2/D
     Route: 048
     Dates: start: 20030101
  5. REDOMEX [Concomitant]
     Dosage: 25 MG, DAILY (1/D)
     Route: 048
     Dates: start: 20040101
  6. REDOMEX [Concomitant]
     Dosage: 75 MG, DAILY (1/D)
     Route: 048
     Dates: start: 20040101
  7. TRAMADOL HCL [Concomitant]
     Indication: MUSCULOSKELETAL PAIN
     Dosage: 100 MG, 2/D
     Route: 048
     Dates: start: 20060101
  8. TRAZODONE HCL [Concomitant]
     Dosage: 2X100MG, DAILY (1/D)
     Route: 048
     Dates: start: 20040101
  9. FOLAVIT [Concomitant]
     Indication: BLOOD FOLATE DECREASED
     Dosage: 0.5X4MG, DAILY (1/D)
     Route: 048
     Dates: start: 20040101
  10. CACIT D3 [Concomitant]
     Indication: UPPER LIMB FRACTURE
     Dosage: 500 MG/440 IE, DAILY (1/D)
     Route: 048
     Dates: start: 20060101
  11. LORMETAZEPAM [Concomitant]
     Dosage: UNK, UNKNOWN
     Route: 065
     Dates: end: 20080101
  12. STAURODORM /00246101/ [Concomitant]
     Dosage: UNK, DAILY (1/D)
     Route: 065
     Dates: start: 20080101
  13. TILDIEM RETARD [Concomitant]
     Dosage: 200 MG, DAILY (1/D)
     Route: 048

REACTIONS (6)
  - DRY MOUTH [None]
  - FAECALOMA [None]
  - SPEECH DISORDER [None]
  - TONGUE PARALYSIS [None]
  - URINARY RETENTION [None]
  - URINARY TRACT INFECTION [None]
